FAERS Safety Report 16270023 (Version 1)
Quarter: 2019Q2

REPORT INFORMATION
  Report Type: Spontaneous
  Country: IT (occurrence: IT)
  Receive Date: 20190503
  Receipt Date: 20190503
  Transmission Date: 20190711
  Serious: Yes (Other)
  Sender: FDA-Public Use
  Company Number: IT-PROVELL PHARMACEUTICALS-2066586

PATIENT
  Sex: Female

DRUGS (5)
  1. EUTHYROX [Suspect]
     Active Substance: LEVOTHYROXINE SODIUM
     Indication: THYROID CANCER
     Route: 048
  2. CABOZANTINIB [Suspect]
     Active Substance: CABOZANTINIB
  3. CABOZANTINIB [Suspect]
     Active Substance: CABOZANTINIB
  4. SUTENT [Suspect]
     Active Substance: SUNITINIB MALATE
  5. CABOZANTINIB [Suspect]
     Active Substance: CABOZANTINIB

REACTIONS (4)
  - Fatigue [None]
  - Bronchial obstruction [None]
  - Hepatotoxicity [None]
  - Diarrhoea [None]
